FAERS Safety Report 6575705-7 (Version None)
Quarter: 2010Q1

REPORT INFORMATION
  Report Type: 
  Country: None (occurrence: None)
  Receive Date: 20100209
  Receipt Date: 20100201
  Transmission Date: 20100710
  Serious: Yes (Hospitalization)
  Sender: FDA-Public Use
  Company Number: FR-BRISTOL-MYERS SQUIBB COMPANY-14960355

PATIENT
  Age: 22 Year
  Sex: Male

DRUGS (4)
  1. ETOPOSIDE [Suspect]
     Indication: CNS GERMINOMA
     Dosage: ROUTE:DR CYCLE 4
     Dates: start: 20080901, end: 20081201
  2. CISPLATIN [Suspect]
     Indication: CNS GERMINOMA
     Dosage: ROUTE:DR CYC 4
     Dates: start: 20080901, end: 20081201
  3. BLEOMYCINE BELLON [Suspect]
     Indication: CNS GERMINOMA
     Dosage: ROUTE:DR CUYC 4
     Dates: start: 20080901, end: 20081201
  4. ANTIBIOTICS [Concomitant]

REACTIONS (7)
  - BONE MARROW FAILURE [None]
  - ENCEPHALITIS [None]
  - GASTROINTESTINAL DISORDER [None]
  - HAEMOLYSIS [None]
  - MUCOSAL INFLAMMATION [None]
  - RENAL FAILURE ACUTE [None]
  - THROMBOTIC MICROANGIOPATHY [None]
